FAERS Safety Report 15761052 (Version 4)
Quarter: 2019Q2

REPORT INFORMATION
  Report Type: Spontaneous
  Country: US (occurrence: US)
  Receive Date: 20181226
  Receipt Date: 20190411
  Transmission Date: 20190711
  Serious: No
  Sender: FDA-Public Use
  Company Number: US-PFIZER INC-2018520510

PATIENT
  Age: 73 Year
  Sex: Female
  Weight: 54 kg

DRUGS (1)
  1. ESTRING [Suspect]
     Active Substance: ESTRADIOL
     Indication: INFECTION
     Dosage: 2 MG, EVERY 3 MONTHS (CHANGED EVERY 90 DAYS)
     Route: 067
     Dates: start: 201706

REACTIONS (3)
  - Wrong technique in product usage process [Recovered/Resolved]
  - Muscle spasms [Recovering/Resolving]
  - Product use in unapproved indication [Unknown]

NARRATIVE: CASE EVENT DATE: 201706
